FAERS Safety Report 20264647 (Version 2)
Quarter: 2022Q1

REPORT INFORMATION
  Report Type: Report from Study
  Country: NL (occurrence: NL)
  Receive Date: 20211231
  Receipt Date: 20220318
  Transmission Date: 20220423
  Serious: Yes (Hospitalization, Other)
  Sender: FDA-Public Use
  Company Number: NL-ACTELION-A-CH2019-195468

PATIENT
  Age: 73 Year
  Sex: Female
  Weight: 65 kg

DRUGS (44)
  1. OPSUMIT [Suspect]
     Active Substance: MACITENTAN
     Indication: Pulmonary arterial hypertension
     Dosage: 10 MG, QD
     Route: 048
     Dates: start: 20190321
  2. HYPROMELLOSES [Concomitant]
     Active Substance: HYPROMELLOSES
     Indication: Dry eye
     Dosage: UNK, PRN
     Route: 031
     Dates: start: 201903, end: 20200426
  3. APIXABAN [Concomitant]
     Active Substance: APIXABAN
     Indication: Deep vein thrombosis
     Dosage: UNK
     Route: 048
     Dates: start: 2018, end: 20200508
  4. APIXABAN [Concomitant]
     Active Substance: APIXABAN
     Dosage: UNK
  5. FLUOROURACIL [Concomitant]
     Active Substance: FLUOROURACIL
     Dosage: UNK
     Route: 048
     Dates: start: 201903, end: 20200426
  6. HYDROCHLOROTHIAZIDE [Concomitant]
     Active Substance: HYDROCHLOROTHIAZIDE
     Dosage: UNK
     Route: 048
     Dates: start: 201901, end: 20200426
  7. NITRAZEPAM [Concomitant]
     Active Substance: NITRAZEPAM
     Indication: Insomnia
     Dosage: UNK
     Route: 048
     Dates: start: 201811
  8. TIOTROPIUM [Concomitant]
     Active Substance: TIOTROPIUM
     Indication: Chronic obstructive pulmonary disease
     Dosage: UNK
     Dates: start: 20190131
  9. METOPROLOL [Concomitant]
     Active Substance: METOPROLOL
     Dosage: UNK
     Route: 048
     Dates: start: 201811, end: 201901
  10. METOPROLOL [Concomitant]
     Active Substance: METOPROLOL
     Dosage: UNK
     Route: 048
     Dates: start: 20200603
  11. ADCIRCA [Concomitant]
     Active Substance: TADALAFIL
     Indication: Pulmonary arterial hypertension
     Dosage: 20 MG, QD
     Route: 048
     Dates: start: 20190422, end: 20190425
  12. ADCIRCA [Concomitant]
     Active Substance: TADALAFIL
     Dosage: 40 MG, QD
     Route: 048
     Dates: start: 20190425
  13. FLUTICASONE [Concomitant]
     Active Substance: FLUTICASONE
     Dosage: UNK
     Dates: start: 20191003
  14. BECLOMETHASONE DIPROPIONATE [Concomitant]
     Active Substance: BECLOMETHASONE DIPROPIONATE
     Dosage: UNK
     Dates: start: 20191212, end: 20200426
  15. ACETAMINOPHEN [Concomitant]
     Active Substance: ACETAMINOPHEN
     Indication: Pain
     Dosage: UNK
     Route: 048
     Dates: start: 20200429, end: 20200612
  16. ONDANSETRON [Concomitant]
     Active Substance: ONDANSETRON
     Indication: Nausea
     Dosage: UNK
     Route: 042
     Dates: start: 20200512, end: 20200513
  17. OXYCONTIN [Concomitant]
     Active Substance: OXYCODONE HYDROCHLORIDE
     Indication: Pain
     Dosage: UNK
     Route: 048
     Dates: start: 20200512, end: 20200522
  18. OXYCODONE HYDROCHLORIDE [Concomitant]
     Active Substance: OXYCODONE HYDROCHLORIDE
     Indication: Pain
     Dosage: UNK
     Route: 048
     Dates: start: 20200512, end: 20200607
  19. CALCIUM GLUCONATE [Concomitant]
     Active Substance: CALCIUM GLUCONATE
     Indication: Surgery
     Dosage: UNK
     Route: 042
     Dates: start: 20200511, end: 20200512
  20. EPHEDRINE [Concomitant]
     Active Substance: EPHEDRINE
     Indication: Surgery
     Dosage: UNK
     Route: 042
     Dates: start: 20200511, end: 20200512
  21. FENTANYL [Concomitant]
     Active Substance: FENTANYL
     Indication: Surgery
     Dosage: UNK
     Route: 042
     Dates: start: 20200511, end: 20200512
  22. FIBRINOGEN [Concomitant]
     Active Substance: FIBRINOGEN HUMAN
     Indication: Surgery
     Dosage: UNK
     Dates: start: 20200511, end: 20200512
  23. VOLUVEN [Concomitant]
     Active Substance: HYDROXYETHYL STARCH 130/0.4
     Indication: Surgery
     Dosage: UNK
     Route: 042
     Dates: start: 20200511, end: 20200512
  24. NOVORAPID [Concomitant]
     Active Substance: INSULIN ASPART
     Indication: Surgery
     Dosage: UNK
     Route: 042
     Dates: start: 20200511, end: 20200512
  25. LIDOCAINE [Concomitant]
     Active Substance: LIDOCAINE
     Indication: Angiocardiogram
     Dosage: UNK
     Dates: start: 20200511, end: 20200512
  26. LIDOCAINE [Concomitant]
     Active Substance: LIDOCAINE
     Dosage: UNK
     Route: 058
     Dates: start: 20200504, end: 20200505
  27. MIDAZOLAM [Concomitant]
     Active Substance: MIDAZOLAM
     Indication: Surgery
     Dosage: UNK
     Route: 042
     Dates: start: 20200511, end: 20200512
  28. MORPHINE [Concomitant]
     Active Substance: MORPHINE
     Indication: Pain
     Dosage: UNK
     Route: 042
     Dates: start: 20200511, end: 20200512
  29. PROPOFOL [Concomitant]
     Active Substance: PROPOFOL
     Indication: Surgery
     Dosage: UNK
     Route: 042
     Dates: start: 20200511, end: 20200512
  30. PROPOFOL [Concomitant]
     Active Substance: PROPOFOL
     Indication: Cardioversion
     Dosage: UNK
     Route: 042
     Dates: start: 20200605, end: 20200606
  31. PROTAMINE [Concomitant]
     Active Substance: PROTAMINE
     Indication: Surgery
     Dosage: UNK
     Route: 042
     Dates: start: 20200511, end: 20200512
  32. REMIFENTANIL [Concomitant]
     Active Substance: REMIFENTANIL
     Indication: Surgery
     Dosage: UNK
     Route: 042
     Dates: start: 20200511, end: 20200512
  33. ROCURONIUM [Concomitant]
     Active Substance: ROCURONIUM BROMIDE
     Indication: Surgery
     Dosage: UNK
     Route: 042
     Dates: start: 20200511, end: 20200512
  34. HEPARIN [Concomitant]
     Active Substance: HEPARIN SODIUM
     Indication: Prophylaxis
     Dosage: UNK
     Route: 042
     Dates: start: 20200511, end: 20200512
  35. HEPARIN [Concomitant]
     Active Substance: HEPARIN SODIUM
     Indication: Angiocardiogram
     Dosage: UNK
     Route: 050
     Dates: start: 20200504, end: 20200505
  36. TRANEXAMIC ACID [Concomitant]
     Active Substance: TRANEXAMIC ACID
     Indication: Haemorrhage prophylaxis
     Dosage: UNK
     Route: 042
     Dates: start: 20200511, end: 20200512
  37. ALBUTEROL\IPRATROPIUM [Concomitant]
     Active Substance: ALBUTEROL\IPRATROPIUM
     Dosage: UNK
     Dates: start: 202005, end: 20200531
  38. MUPIROCIN [Concomitant]
     Active Substance: MUPIROCIN
     Dosage: UNK
     Dates: start: 20200508, end: 20200518
  39. PREDNISOLONE [Concomitant]
     Active Substance: PREDNISOLONE
     Indication: Prophylaxis
     Dosage: UNK
     Route: 048
     Dates: start: 20200511, end: 20200512
  40. PREDNISOLONE [Concomitant]
     Active Substance: PREDNISOLONE
     Indication: Angiocardiogram
     Dosage: UNK
     Route: 048
     Dates: start: 20200504, end: 20200505
  41. NADROPARIN [Concomitant]
     Active Substance: NADROPARIN
     Indication: Thrombosis prophylaxis
     Dosage: UNK
     Route: 058
     Dates: start: 20200511, end: 20200612
  42. CLEMASTINE [Concomitant]
     Active Substance: CLEMASTINE
     Indication: Hypersensitivity
     Dosage: UNK
     Route: 042
     Dates: start: 20200504, end: 20200505
  43. HYDROCORTISONE [Concomitant]
     Active Substance: HYDROCORTISONE
     Indication: Hypersensitivity
     Dosage: UNK
     Route: 042
     Dates: start: 20200504, end: 20200505
  44. MOVICOLON [Concomitant]
     Active Substance: POLYETHYLENE GLYCOL 3350\POTASSIUM CHLORIDE\SODIUM BICARBONATE\SODIUM CHLORIDE
     Indication: Constipation
     Dosage: UNK
     Route: 048
     Dates: start: 20200502

REACTIONS (32)
  - Streptococcal endocarditis [Recovered/Resolved]
  - Condition aggravated [Recovering/Resolving]
  - Streptococcal bacteraemia [Recovered/Resolved]
  - Dyspnoea [Recovering/Resolving]
  - Night sweats [Recovering/Resolving]
  - Chest pain [Recovering/Resolving]
  - Pleural effusion [Recovering/Resolving]
  - Mitral valve incompetence [Recovered/Resolved]
  - Tricuspid valve prolapse [Recovering/Resolving]
  - Mitral valve replacement [Recovered/Resolved]
  - Tricuspid valve repair [Recovered/Resolved]
  - Cardioversion [Unknown]
  - Cardiac failure [Not Recovered/Not Resolved]
  - Angina pectoris [Recovered/Resolved]
  - Chills [Recovering/Resolving]
  - Pneumonia [Recovered/Resolved]
  - Dyspnoea exertional [Recovered/Resolved]
  - Malaise [Recovered/Resolved]
  - Dizziness [Recovered/Resolved]
  - Cough [Unknown]
  - C-reactive protein increased [Unknown]
  - Pyrexia [Unknown]
  - Fatigue [Unknown]
  - Hypokalaemia [Recovered/Resolved]
  - Atrial fibrillation [Recovered/Resolved]
  - Generalised oedema [Unknown]
  - Hypotension [Unknown]
  - Atrial flutter [Recovered/Resolved]
  - Renal impairment [Not Recovered/Not Resolved]
  - Creatinine renal clearance decreased [Not Recovered/Not Resolved]
  - Myocardial ischaemia [Unknown]
  - Dyspnoea [Not Recovered/Not Resolved]

NARRATIVE: CASE EVENT DATE: 20190720
